FAERS Safety Report 17459379 (Version 1)
Quarter: 2020Q1

REPORT INFORMATION
  Report Type: Spontaneous
  Country: JP (occurrence: JP)
  Receive Date: 20200226
  Receipt Date: 20200226
  Transmission Date: 20200409
  Serious: Yes (Other)
  Sender: FDA-Public Use
  Company Number: JP-PFIZER INC-2020083290

PATIENT
  Age: 7 Decade
  Sex: Male

DRUGS (3)
  1. SUTENT [Suspect]
     Active Substance: SUNITINIB MALATE
     Dosage: 25 MG CYCLIC(12.5MG WAS GIVEN DAY AFTER DAY, 25MG  WAS USED ON THE 4TH AND 5TH DAY)
  2. SUTENT [Suspect]
     Active Substance: SUNITINIB MALATE
     Indication: PANCREATIC NEUROENDOCRINE TUMOUR
     Dosage: 12.5MG CYCLIC(12.5MG WAS GIVEN DAY AFTER DAY, 25MG  WAS USED ON THE 4TH AND 5TH DAY)
  3. SUTENT [Suspect]
     Active Substance: SUNITINIB MALATE
     Dosage: UNK, CYCLIC

REACTIONS (1)
  - Bone marrow failure [Unknown]
